FAERS Safety Report 14697897 (Version 2)
Quarter: 2018Q3

REPORT INFORMATION
  Report Type: Report from Study
  Country: None (occurrence: US)
  Receive Date: 20180330
  Receipt Date: 20180703
  Transmission Date: 20181010
  Serious: Yes (Other)
  Sender: FDA-Public Use
  Company Number: US-ABBVIE-17K-163-1995265-00

PATIENT
  Age: 46 Year
  Sex: Female

DRUGS (2)
  1. HUMIRA [Suspect]
     Active Substance: ADALIMUMAB
     Indication: CROHN^S DISEASE
     Route: 058
  2. HUMIRA [Suspect]
     Active Substance: ADALIMUMAB
     Route: 058

REACTIONS (27)
  - Myositis [Unknown]
  - Injection site mass [Not Recovered/Not Resolved]
  - Renal impairment [Recovering/Resolving]
  - Arthralgia [Recovering/Resolving]
  - Injection site bruising [Recovering/Resolving]
  - Tendon pain [Unknown]
  - Lupus-like syndrome [Unknown]
  - Swelling [Unknown]
  - Fatigue [Unknown]
  - Pain [Unknown]
  - Myalgia [Unknown]
  - Arthritis [Recovering/Resolving]
  - Paraesthesia [Unknown]
  - Vertigo [Unknown]
  - Skin disorder [Unknown]
  - Anxiety [Unknown]
  - Stress [Unknown]
  - Liver function test increased [Recovering/Resolving]
  - Headache [Unknown]
  - Joint effusion [Unknown]
  - Arthritis [Unknown]
  - Vision blurred [Unknown]
  - Depression [Unknown]
  - Migraine [Unknown]
  - Asthenia [Unknown]
  - Tendonitis [Unknown]
  - Fluid retention [Unknown]

NARRATIVE: CASE EVENT DATE: 201705
